FAERS Safety Report 18438055 (Version 5)
Quarter: 2021Q4

REPORT INFORMATION
  Report Type: Spontaneous
  Country: None (occurrence: US)
  Receive Date: 20201029
  Receipt Date: 20211125
  Transmission Date: 20220303
  Serious: No
  Sender: FDA-Public Use
  Company Number: US-AKCEA THERAPEUTICS-2020IS001412

PATIENT
  Age: 79 Year
  Sex: Female

DRUGS (14)
  1. TEGSEDI [Suspect]
     Active Substance: INOTERSEN SODIUM
     Indication: Hereditary neuropathic amyloidosis
     Route: 058
     Dates: start: 20190802
  2. DEVICE [Suspect]
     Active Substance: DEVICE
  3. TEGSEDI [Suspect]
     Active Substance: INOTERSEN SODIUM
     Route: 058
     Dates: end: 202104
  4. TEGSEDI [Suspect]
     Active Substance: INOTERSEN SODIUM
     Route: 058
  5. ELIQUIS [Concomitant]
     Active Substance: APIXABAN
     Route: 065
  6. ATORVASTATIN CALCIUM [Concomitant]
     Active Substance: ATORVASTATIN CALCIUM
     Route: 065
  7. METOPROLOL TARTRATE [Concomitant]
     Active Substance: METOPROLOL TARTRATE
     Route: 065
  8. OMEPRAZOLE [Concomitant]
     Active Substance: OMEPRAZOLE
     Route: 065
  9. ASPIRIN [Concomitant]
     Active Substance: ASPIRIN
     Route: 065
  10. VITAMIN D3 [Concomitant]
     Active Substance: CHOLECALCIFEROL
     Route: 065
  11. GREEN TEA LEAF [Concomitant]
     Active Substance: GREEN TEA LEAF
     Route: 065
  12. DIFLUNISAL [Concomitant]
     Active Substance: DIFLUNISAL
     Route: 065
  13. AMLODIPINE BESYLATE [Concomitant]
     Active Substance: AMLODIPINE BESYLATE
     Route: 065
  14. VITAMINS [Concomitant]
     Active Substance: VITAMINS
     Route: 065

REACTIONS (17)
  - Urine protein/creatinine ratio increased [Unknown]
  - Urine leukocyte esterase positive [Unknown]
  - Urinary casts [Unknown]
  - White blood cells urine positive [Unknown]
  - Bacterial test positive [Not Recovered/Not Resolved]
  - Platelet count decreased [Not Recovered/Not Resolved]
  - Protein urine present [Unknown]
  - SARS-CoV-2 test positive [Unknown]
  - Urine abnormality [Unknown]
  - Urine analysis abnormal [Unknown]
  - Blood creatinine abnormal [Unknown]
  - Glomerular filtration rate decreased [Unknown]
  - Urine ketone body present [Unknown]
  - Urinary sediment present [Unknown]
  - Crystal urine present [Unknown]
  - Red blood cells urine positive [Unknown]
  - Nitrite urine present [Unknown]

NARRATIVE: CASE EVENT DATE: 20200825
